FAERS Safety Report 8819148 (Version 1)
Quarter: 2012Q4

REPORT INFORMATION
  Report Type: 
  Country: US (occurrence: US)
  Receive Date: 20121001
  Receipt Date: 20121001
  Transmission Date: 20130627
  Serious: No
  Sender: FDA-Public Use
  Company Number: US-PFIZER INC-2012241144

PATIENT
  Age: 76 Year
  Sex: Female
  Weight: 90.7 kg

DRUGS (3)
  1. LYRICA [Suspect]
     Indication: NEUROPATHY PERIPHERAL
     Dosage: 100 mg, 2x/day
     Route: 048
  2. LYRICA [Suspect]
     Dosage: 100 mg, 1x/day
     Route: 048
  3. CELEBREX [Concomitant]

REACTIONS (2)
  - Oedema mouth [Unknown]
  - Weight increased [Unknown]
